FAERS Safety Report 12192805 (Version 4)
Quarter: 2017Q2

REPORT INFORMATION
  Report Type: Report from Study
  Country: US (occurrence: US)
  Receive Date: 20160318
  Receipt Date: 20170530
  Transmission Date: 20170830
  Serious: Yes (Death, Hospitalization)
  Sender: FDA-Public Use
  Company Number: US-ACTELION-A-US2015-129286

PATIENT
  Age: 54 Year
  Sex: Female
  Weight: 81.63 kg

DRUGS (3)
  1. REMODULIN [Suspect]
     Active Substance: TREPROSTINIL
     Indication: PRODUCT USED FOR UNKNOWN INDICATION
     Route: 065
  2. ADCIRCA [Concomitant]
     Active Substance: TADALAFIL
  3. OPSUMIT [Suspect]
     Active Substance: MACITENTAN
     Indication: PULMONARY ARTERIAL HYPERTENSION
     Dosage: 10 MG, QD
     Route: 048
     Dates: start: 20151222

REACTIONS (16)
  - Pneumonia [Unknown]
  - Dry eye [Unknown]
  - Incorrect dose administered by device [Unknown]
  - Concomitant disease progression [Fatal]
  - Headache [Unknown]
  - Right ventricular failure [Fatal]
  - Productive cough [Unknown]
  - Asthenia [Unknown]
  - Anxiety [Unknown]
  - Malaise [Unknown]
  - Vision blurred [Unknown]
  - Syncope [Unknown]
  - Dyspnoea [Unknown]
  - Diplopia [Unknown]
  - Dizziness [Unknown]
  - Hypotension [Unknown]

NARRATIVE: CASE EVENT DATE: 201602
